FAERS Safety Report 14954990 (Version 1)
Quarter: 2018Q2

REPORT INFORMATION
  Report Type: Spontaneous
  Country: FR (occurrence: FR)
  Receive Date: 20180531
  Receipt Date: 20180531
  Transmission Date: 20180711
  Serious: Yes (Other)
  Sender: FDA-Public Use
  Company Number: FR-MERCK KGAA-2048726

PATIENT
  Age: 66 Year
  Sex: Female

DRUGS (5)
  1. NOVOTHYROX [Suspect]
     Active Substance: LEVOTHYROXINE SODIUM
     Indication: POST PROCEDURAL HYPOTHYROIDISM
     Dates: start: 201704
  2. NOVOTHYROX [Suspect]
     Active Substance: LEVOTHYROXINE SODIUM
  3. NOVOTHYROX [Suspect]
     Active Substance: LEVOTHYROXINE SODIUM
  4. NOVOTHYROX [Suspect]
     Active Substance: LEVOTHYROXINE SODIUM
  5. NOVOTHYROX [Suspect]
     Active Substance: LEVOTHYROXINE SODIUM
     Dates: start: 2018

REACTIONS (37)
  - Gastrointestinal motility disorder [None]
  - Tendon pain [None]
  - Blood creatinine increased [None]
  - Mean cell haemoglobin concentration [None]
  - Rash [Not Recovered/Not Resolved]
  - Pain in extremity [None]
  - Depression [None]
  - Abdominal pain [None]
  - Disturbance in attention [None]
  - Psychiatric symptom [None]
  - Blood thyroid stimulating hormone increased [Not Recovered/Not Resolved]
  - Sleep disorder [None]
  - Alopecia [None]
  - Hospitalisation [None]
  - Gait disturbance [None]
  - Constipation [None]
  - Dizziness [Not Recovered/Not Resolved]
  - Memory impairment [None]
  - Amnesia [None]
  - Skin odour abnormal [None]
  - Fatigue [None]
  - Irritability [None]
  - Weight increased [None]
  - C-reactive protein increased [None]
  - Fear of falling [None]
  - Headache [Not Recovered/Not Resolved]
  - Palpitations [Not Recovered/Not Resolved]
  - Musculoskeletal pain [None]
  - Mean cell haemoglobin decreased [None]
  - Glomerular filtration rate decreased [None]
  - Haemoglobin decreased [None]
  - Morbid thoughts [None]
  - Somnolence [None]
  - Hyperhidrosis [None]
  - Anxiety [None]
  - Social avoidant behaviour [None]
  - Affective disorder [None]

NARRATIVE: CASE EVENT DATE: 201704
